FAERS Safety Report 7235942-5 (Version None)
Quarter: 2011Q1

REPORT INFORMATION
  Report Type: 
  Country: None (occurrence: None)
  Receive Date: 20110120
  Receipt Date: 20110114
  Transmission Date: 20110831
  Serious: Yes (Other)
  Sender: FDA-Public Use
  Company Number: A0879854A

PATIENT
  Sex: Male

DRUGS (3)
  1. LAMICTAL [Suspect]
     Indication: BIPOLAR II DISORDER
     Dosage: 200MGD PER DAY
     Route: 048
     Dates: start: 20050601
  2. NONE [Concomitant]
  3. ESKALITH CR [Suspect]
     Indication: BIPOLAR II DISORDER
     Dosage: 900MGD PER DAY
     Route: 048
     Dates: start: 20080724

REACTIONS (5)
  - CRIME [None]
  - FEELING OF DESPAIR [None]
  - SEMEN ANALYSIS ABNORMAL [None]
  - BRONCHOPNEUMONIA [None]
  - ADVERSE EVENT [None]
